FAERS Safety Report 10892080 (Version 1)
Quarter: 2015Q1

REPORT INFORMATION
  Report Type: Spontaneous
  Country: US (occurrence: US)
  Receive Date: 20150306
  Receipt Date: 20150306
  Transmission Date: 20150721
  Serious: Yes (Other)
  Sender: FDA-Public Use
  Company Number: US-JNJFOC-20150304029

PATIENT
  Sex: Male
  Weight: 70.31 kg

DRUGS (8)
  1. XARELTO [Concomitant]
     Active Substance: RIVAROXABAN
     Indication: MESENTERIC VEIN THROMBOSIS
     Route: 048
     Dates: start: 201310
  2. NADOLOL. [Concomitant]
     Active Substance: NADOLOL
     Route: 048
  3. XARELTO [Concomitant]
     Active Substance: RIVAROXABAN
     Indication: PORTAL VEIN THROMBOSIS
     Route: 048
     Dates: start: 201310
  4. XARELTO [Concomitant]
     Active Substance: RIVAROXABAN
     Indication: MESENTERIC VEIN THROMBOSIS
     Route: 048
     Dates: start: 2014
  5. DURAGESIC [Suspect]
     Active Substance: FENTANYL
     Indication: PAIN
     Route: 062
  6. XARELTO [Concomitant]
     Active Substance: RIVAROXABAN
     Indication: SPLENIC VEIN THROMBOSIS
     Route: 048
     Dates: start: 201310
  7. XARELTO [Concomitant]
     Active Substance: RIVAROXABAN
     Indication: PORTAL VEIN THROMBOSIS
     Route: 048
     Dates: start: 2014
  8. XARELTO [Concomitant]
     Active Substance: RIVAROXABAN
     Indication: SPLENIC VEIN THROMBOSIS
     Route: 048
     Dates: start: 2014

REACTIONS (2)
  - Respiratory arrest [Unknown]
  - Drug hypersensitivity [Unknown]
